FAERS Safety Report 5241260-7 (Version None)
Quarter: 2007Q1

REPORT INFORMATION
  Report Type: 
  Country: None (occurrence: None)
  Receive Date: 20070215
  Receipt Date: 20070215
  Transmission Date: 20070707
  Serious: Yes (Hospitalization)
  Sender: FDA-Public Use
  Company Number: None

PATIENT
  Age: 80 Year
  Sex: Male

DRUGS (7)
  1. FUROSEMIDE [Suspect]
     Indication: HYPERTENSION
     Dosage: 40MG QD
     Dates: start: 20000301
  2. SPIRONOLACTONE [Suspect]
     Indication: HYPERTENSION
     Dosage: 25 MG QD
     Dates: start: 20010601
  3. ASPIRIN [Concomitant]
  4. CAPTOPRIL [Concomitant]
  5. NPH INSULIN [Concomitant]
  6. LACTULOSE [Concomitant]
  7. ZOCOR [Concomitant]

REACTIONS (3)
  - DEHYDRATION [None]
  - HYPERKALAEMIA [None]
  - SYNCOPE [None]
